FAERS Safety Report 6011586-8 (Version None)
Quarter: 2008Q4

REPORT INFORMATION
  Report Type: 
  Country: None (occurrence: None)
  Receive Date: 20081218
  Receipt Date: 20080916
  Transmission Date: 20090506
  Serious: No
  Sender: FDA-Public Use
  Company Number: US-ASTRAZENECA-2008UW19264

PATIENT
  Age: 89 Year
  Sex: Female
  Weight: 71.7 kg

DRUGS (5)
  1. CRESTOR [Suspect]
     Indication: BLOOD CHOLESTEROL INCREASED
     Route: 048
     Dates: start: 20080801
  2. LEVOTHYROXONE [Concomitant]
  3. ATENOLOL [Concomitant]
  4. TEKTERNA [Concomitant]
  5. VERAPAMIL [Concomitant]

REACTIONS (3)
  - ABDOMINAL PAIN LOWER [None]
  - ABNORMAL FAECES [None]
  - DIARRHOEA [None]
